FAERS Safety Report 6341350-1 (Version None)
Quarter: 2009Q3

REPORT INFORMATION
  Report Type: 
  Country: None (occurrence: None)
  Receive Date: 20090904
  Receipt Date: 20090831
  Transmission Date: 20100115
  Serious: Yes (Life-Threatening, Hospitalization, Disabling, Other)
  Sender: FDA-Public Use
  Company Number: PHHO2008US05802

PATIENT
  Sex: Male
  Weight: 111 kg

DRUGS (4)
  1. RAD 666 RAD+TAB+CMAS [Suspect]
     Indication: GLIOBLASTOMA
     Dosage: 5MG
     Dates: start: 20080502, end: 20080504
  2. HYDROCHLOROTHIAZIDE [Concomitant]
     Dosage: 25
  3. DEXAMETHASONE [Concomitant]
     Dosage: 4
  4. NEXIUM [Concomitant]
     Dosage: 40

REACTIONS (7)
  - ASPIRATION [None]
  - COLLAPSE OF LUNG [None]
  - CONVULSION [None]
  - DISEASE PROGRESSION [None]
  - PNEUMOTHORAX [None]
  - RESPIRATORY TRACT INFECTION [None]
  - VOMITING [None]
